FAERS Safety Report 10743511 (Version 1)
Quarter: 2015Q1

REPORT INFORMATION
  Report Type: Spontaneous
  Country: BR (occurrence: BR)
  Receive Date: 20150128
  Receipt Date: 20150128
  Transmission Date: 20150721
  Serious: Yes (Hospitalization, Other)
  Sender: FDA-Public Use
  Company Number: BR-CIPLA LTD.-2015BR00600

PATIENT

DRUGS (7)
  1. BLEOMYCIN [Suspect]
     Active Substance: BLEOMYCIN SULFATE
     Indication: GERM CELL NEOPLASM
  2. GEMCITABINE [Suspect]
     Active Substance: GEMCITABINE\GEMCITABINE HYDROCHLORIDE
     Indication: GERM CELL NEOPLASM
     Dosage: 1000 MG/M2 ON DAYS 1, 8 AND 15 OF A 28 DAY CYCLE
  3. PACLITAXEL. [Suspect]
     Active Substance: PACLITAXEL
     Indication: GERM CELL NEOPLASM
     Dosage: 100 MG/M2 ON DAY 1
  4. ETOPOSIDE. [Suspect]
     Active Substance: ETOPOSIDE
     Indication: GERM CELL NEOPLASM
  5. VINBLASTINE [Suspect]
     Active Substance: VINBLASTINE
     Indication: GERM CELL NEOPLASM
  6. CISPLATIN. [Suspect]
     Active Substance: CISPLATIN
     Indication: GERM CELL NEOPLASM
  7. IFOSFAMIDE. [Suspect]
     Active Substance: IFOSFAMIDE
     Indication: GERM CELL NEOPLASM

REACTIONS (10)
  - Renal injury [Unknown]
  - Thrombocytopenia [Unknown]
  - Disease progression [Unknown]
  - Mental status changes [Unknown]
  - Haematoma [Unknown]
  - Brain death [Unknown]
  - Haemorrhage [Unknown]
  - Haemolytic anaemia [Unknown]
  - Thrombotic microangiopathy [Unknown]
  - Seizure [Unknown]
